FAERS Safety Report 23646175 (Version 2)
Quarter: 2024Q2

REPORT INFORMATION
  Report Type: Report from Study
  Country: US (occurrence: US)
  Receive Date: 20240319
  Receipt Date: 20240524
  Transmission Date: 20240715
  Serious: Yes (Other)
  Sender: FDA-Public Use
  Company Number: US-002147023-NVSC2024US056904

PATIENT
  Age: 58 Year
  Sex: Male

DRUGS (3)
  1. KESIMPTA [Suspect]
     Active Substance: OFATUMUMAB
     Indication: Product used for unknown indication
     Dosage: UNK, QMO
     Route: 065
     Dates: start: 20221207
  2. KESIMPTA [Suspect]
     Active Substance: OFATUMUMAB
     Dosage: UNK, Q4W
     Route: 065
  3. KESIMPTA [Suspect]
     Active Substance: OFATUMUMAB
     Dosage: UNK, QMO (NOW SAME DATE EACH)
     Route: 065

REACTIONS (9)
  - Hemiparesis [Unknown]
  - Fatigue [Unknown]
  - Mobility decreased [Not Recovered/Not Resolved]
  - Sluggishness [Unknown]
  - Feeling abnormal [Unknown]
  - Gait disturbance [Unknown]
  - Asthenia [Unknown]
  - Central nervous system lesion [Unknown]
  - Temperature intolerance [Unknown]

NARRATIVE: CASE EVENT DATE: 20230323
